FAERS Safety Report 8248681-9 (Version None)
Quarter: 2012Q1

REPORT INFORMATION
  Report Type: 
  Country: None (occurrence: None)
  Receive Date: 20120331
  Receipt Date: 20120322
  Transmission Date: 20120608
  Serious: Yes (Other)
  Sender: FDA-Public Use
  Company Number: PHHY2012BR009855

PATIENT
  Sex: Male
  Weight: 100 kg

DRUGS (1)
  1. EXFORGE [Suspect]
     Indication: HYPERTENSION
     Dosage: 1 DF, (160/5 MG, ONE TABLET DAILY)

REACTIONS (5)
  - GLUCOSE TOLERANCE IMPAIRED [None]
  - WEIGHT INCREASED [None]
  - RENIN INCREASED [None]
  - BLOOD PRESSURE INCREASED [None]
  - HEADACHE [None]
